FAERS Safety Report 23651357 (Version 3)
Quarter: 2024Q2

REPORT INFORMATION
  Report Type: Spontaneous
  Country: US (occurrence: US)
  Receive Date: 20240320
  Receipt Date: 20240430
  Transmission Date: 20240715
  Serious: No
  Sender: FDA-Public Use
  Company Number: US-AMGEN-USASP2024056203

PATIENT
  Age: 76 Year
  Sex: Female

DRUGS (24)
  1. REPATHA [Suspect]
     Active Substance: EVOLOCUMAB
     Indication: Arteriosclerosis
     Dosage: 140 MILLIGRAM, Q2WK
     Route: 058
  2. REPATHA [Suspect]
     Active Substance: EVOLOCUMAB
     Dosage: 140 MILLIGRAM, QMO
     Route: 058
     Dates: start: 2023
  3. REPATHA [Suspect]
     Active Substance: EVOLOCUMAB
     Dosage: 140 MILLIGRAM, Q2WK
     Route: 058
     Dates: start: 202312
  4. BACLOFEN [Concomitant]
     Active Substance: BACLOFEN
     Dosage: 20 MILLIGRAM, QD
  5. BACLOFEN [Concomitant]
     Active Substance: BACLOFEN
     Indication: Product used for unknown indication
     Dosage: 15 MILLIGRAM, QD
     Dates: start: 2023
  6. BACLOFEN [Concomitant]
     Active Substance: BACLOFEN
     Indication: Restless legs syndrome
     Dosage: 15 MILLIGRAM, QD
     Dates: start: 2023
  7. BACLOFEN [Concomitant]
     Active Substance: BACLOFEN
     Indication: Neuropathy peripheral
     Route: 058
  8. BACLOFEN [Concomitant]
     Active Substance: BACLOFEN
     Indication: Muscle spasms
  9. CLOPIDOGREL [Concomitant]
     Active Substance: CLOPIDOGREL BISULFATE
     Indication: Anticoagulant therapy
     Dosage: 75 MILLIGRAM, QD
     Route: 065
     Dates: start: 2017
  10. CLOPIDOGREL [Concomitant]
     Active Substance: CLOPIDOGREL BISULFATE
     Indication: Product used for unknown indication
     Route: 058
  11. EZETIMIBE [Concomitant]
     Active Substance: EZETIMIBE
     Indication: Blood cholesterol abnormal
     Dosage: 10 MILLIGRAM, QD
     Route: 065
     Dates: start: 2019
  12. EZETIMIBE [Concomitant]
     Active Substance: EZETIMIBE
     Indication: Product used for unknown indication
     Route: 058
  13. FAMOTIDINE [Concomitant]
     Active Substance: FAMOTIDINE
     Indication: Gastrointestinal disorder
     Dosage: 20 MILLIGRAM, QD
     Route: 058
  14. FAMOTIDINE [Concomitant]
     Active Substance: FAMOTIDINE
     Indication: Product used for unknown indication
     Route: 058
  15. ISOSORBIDE MONONITRATE [Concomitant]
     Active Substance: ISOSORBIDE MONONITRATE
     Indication: Blood pressure abnormal
     Dosage: 15 MILLIGRAM, BID
     Route: 065
  16. ISOSORBIDE MONONITRATE [Concomitant]
     Active Substance: ISOSORBIDE MONONITRATE
     Indication: Angina pectoris
     Route: 058
  17. ISOSORBIDE MONONITRATE [Concomitant]
     Active Substance: ISOSORBIDE MONONITRATE
     Indication: Product used for unknown indication
  18. LEVOTHYROXINE [Concomitant]
     Active Substance: LEVOTHYROXINE\LEVOTHYROXINE SODIUM
     Indication: Thyroid disorder
     Dosage: 88 MICROGRAM, QD
     Route: 065
     Dates: start: 1991
  19. LEVOTHYROXINE [Concomitant]
     Active Substance: LEVOTHYROXINE\LEVOTHYROXINE SODIUM
     Indication: Product used for unknown indication
     Route: 058
  20. LIOTHYRONINE [Concomitant]
     Active Substance: LIOTHYRONINE
     Indication: Thyroid disorder
     Dosage: 5 MICROGRAM, QD
     Route: 065
     Dates: start: 1991
  21. ASPIRIN [Concomitant]
     Active Substance: ASPIRIN
     Indication: Anticoagulant therapy
     Dosage: 81 MILLIGRAM
     Dates: start: 1994
  22. ASPIRIN [Concomitant]
     Active Substance: ASPIRIN
     Dosage: UNK
  23. CARVEDILOL [Concomitant]
     Active Substance: CARVEDILOL
     Indication: Blood pressure abnormal
     Dosage: 12.5 MILLIGRAM, BID
     Dates: start: 2019
  24. ALBUTEROL [Concomitant]
     Active Substance: ALBUTEROL
     Indication: Asthma
     Dosage: 90 MICROGRAM
     Dates: start: 2021

REACTIONS (4)
  - Device difficult to use [Unknown]
  - Laboratory test abnormal [Unknown]
  - Injection site pain [Not Recovered/Not Resolved]
  - Cough [Not Recovered/Not Resolved]

NARRATIVE: CASE EVENT DATE: 20230101
